FAERS Safety Report 8116101-0 (Version None)
Quarter: 2012Q1

REPORT INFORMATION
  Report Type: 
  Country: None (occurrence: None)
  Receive Date: 20120206
  Receipt Date: 20120127
  Transmission Date: 20120608
  Serious: Yes (Other)
  Sender: FDA-Public Use
  Company Number: CH-AMGEN-CHESP2012007283

PATIENT
  Age: 81 Year
  Sex: Female

DRUGS (3)
  1. SIMVASTATIN [Suspect]
     Indication: PRODUCT USED FOR UNKNOWN INDICATION
     Dosage: 1U PER DAY
     Route: 048
  2. PROLIA [Suspect]
     Indication: OSTEOPOROSIS
     Dosage: 60MG SEE DOSAGE TEXT
     Route: 058
  3. LEVOTHYROXINE SODIUM [Suspect]
     Indication: PRODUCT USED FOR UNKNOWN INDICATION
     Dosage: 1U PER DAY
     Route: 048

REACTIONS (1)
  - ALOPECIA [None]
